FAERS Safety Report 5113506-7 (Version None)
Quarter: 2006Q3

REPORT INFORMATION
  Report Type: 
  Country: None (occurrence: None)
  Receive Date: 20060921
  Receipt Date: 20060908
  Transmission Date: 20061208
  Serious: Yes (Other)
  Sender: FDA-Public Use
  Company Number: 2006110110

PATIENT
  Sex: Male

DRUGS (3)
  1. DIFLUCAN [Suspect]
     Indication: CANDIDIASIS
     Dosage: ORAL
     Route: 048
     Dates: start: 20060801, end: 20060829
  2. DIFLUCAN [Suspect]
     Indication: CANDIDIASIS
     Dosage: 600 MG, INTRAVENOUS
     Route: 042
     Dates: start: 20060829
  3. ZOSYN [Concomitant]

REACTIONS (2)
  - DRUG PRESCRIBING ERROR [None]
  - THERAPY NON-RESPONDER [None]
